FAERS Safety Report 4971038-0 (Version None)
Quarter: 2006Q2

REPORT INFORMATION
  Report Type: 
  Country: None (occurrence: None)
  Receive Date: 20060412
  Receipt Date: 20060405
  Transmission Date: 20061013
  Serious: Yes (Hospitalization)
  Sender: FDA-Public Use
  Company Number: US-JNJFOC-20060402061

PATIENT
  Sex: Female

DRUGS (7)
  1. DURAGESIC-100 [Suspect]
     Route: 062
  2. GABAPENTIN [Concomitant]
  3. ZOLOFT [Concomitant]
     Indication: DEPRESSION
     Route: 048
  4. LORATADINE [Concomitant]
     Route: 048
  5. LEVOXYL [Concomitant]
     Indication: HYPERTHYROIDISM
  6. NORCO [Concomitant]
  7. NORCO [Concomitant]
     Indication: PAIN

REACTIONS (4)
  - APPLICATION SITE DERMATITIS [None]
  - APPLICATION SITE ERYTHEMA [None]
  - BACK PAIN [None]
  - NECK PAIN [None]
